FAERS Safety Report 20955982 (Version 2)
Quarter: 2022Q2

REPORT INFORMATION
  Report Type: Spontaneous
  Country: US (occurrence: None)
  Receive Date: 20220614
  Receipt Date: 20220615
  Transmission Date: 20220721
  Serious: No
  Sender: FDA-Public Use
  Company Number: US-MDD US Operations-MDD202110-002182

PATIENT
  Age: 65 Year
  Sex: Male

DRUGS (6)
  1. APOKYN [Suspect]
     Active Substance: APOMORPHINE HYDROCHLORIDE
     Indication: Parkinson^s disease
     Route: 058
     Dates: start: 20211021
  2. CARBIDOPA [Concomitant]
     Active Substance: CARBIDOPA
     Dosage: NOT PROVIDED
  3. LEVODOPA [Concomitant]
     Active Substance: LEVODOPA
     Dosage: NOT PROVIDED
  4. AMANTADINE [Concomitant]
     Active Substance: AMANTADINE
     Dosage: NOT PROVIDED
  5. COMTAN [Concomitant]
     Active Substance: ENTACAPONE
     Dosage: NOT PROVIDED
  6. SELEGILINE [Concomitant]
     Active Substance: SELEGILINE
     Dosage: NOT PROVIDED

REACTIONS (4)
  - Feeling abnormal [Unknown]
  - Nausea [Unknown]
  - Blood pressure decreased [Unknown]
  - Hyperhidrosis [Unknown]

NARRATIVE: CASE EVENT DATE: 20211001
